FAERS Safety Report 9251821 (Version 2)
Quarter: 2013Q3

REPORT INFORMATION
  Report Type: Spontaneous
  Country: US (occurrence: US)
  Receive Date: 20130424
  Receipt Date: 20130809
  Transmission Date: 20140515
  Serious: Yes (Disabling, Other)
  Sender: FDA-Public Use
  Company Number: US-ASTRAZENECA-2013SE27350

PATIENT
  Age: 50 Year
  Sex: Female

DRUGS (12)
  1. NEXIUM [Suspect]
     Indication: GASTROOESOPHAGEAL REFLUX DISEASE
     Route: 048
     Dates: start: 2003, end: 2011
  2. NEXIUM [Suspect]
     Indication: GASTROOESOPHAGEAL REFLUX DISEASE
     Route: 048
     Dates: start: 20050309
  3. PROTONIX [Concomitant]
     Dates: start: 2011
  4. RANITIDINE [Concomitant]
  5. ROLAIDS [Concomitant]
     Dosage: 1-2 TABLETS, DAILY
  6. ESTROGEN [Concomitant]
     Indication: HORMONE REPLACEMENT THERAPY
  7. METOPROLOL TARTRATE [Concomitant]
     Dates: start: 20100428
  8. LOVASTATIN [Concomitant]
     Dates: start: 20100220
  9. GEODON [Concomitant]
     Dates: start: 20100215
  10. OXYBUTYNIN [Concomitant]
     Route: 048
     Dates: start: 20041228
  11. CARISOPRODOL [Concomitant]
     Route: 048
     Dates: start: 20050923
  12. HYDROCODONE/APAP [Concomitant]
     Dosage: 10MG/650MG, AS NEEDED
     Route: 048
     Dates: start: 20060309

REACTIONS (24)
  - Convulsion [Unknown]
  - Arthritis [Unknown]
  - Myocardial infarction [Unknown]
  - Limb injury [Unknown]
  - Back injury [Unknown]
  - Depression [Unknown]
  - Osteoporosis [Unknown]
  - Bone density decreased [Unknown]
  - Bone disorder [Unknown]
  - Multiple fractures [Unknown]
  - Spinal disorder [Unknown]
  - Rheumatoid arthritis [Unknown]
  - Bipolar disorder [Unknown]
  - Anxiety [Unknown]
  - Cataract [Unknown]
  - Chronic obstructive pulmonary disease [Unknown]
  - Glaucoma [Unknown]
  - Vitamin D deficiency [Unknown]
  - Scoliosis [Unknown]
  - Osteomalacia [Unknown]
  - Sciatic nerve injury [Unknown]
  - Intervertebral disc protrusion [Unknown]
  - Intervertebral disc degeneration [Unknown]
  - Osteoarthritis [Unknown]
